FAERS Safety Report 11834082 (Version 3)
Quarter: 2016Q1

REPORT INFORMATION
  Report Type: Spontaneous
  Country: JP (occurrence: JP)
  Receive Date: 20151214
  Receipt Date: 20160304
  Transmission Date: 20160525
  Serious: Yes (Hospitalization, Other)
  Sender: FDA-Public Use
  Company Number: JP-009507513-1512JPN004785

PATIENT
  Age: 85 Year
  Sex: Female
  Weight: 50 kg

DRUGS (8)
  1. FUROSEMIDE. [Suspect]
     Active Substance: FUROSEMIDE
     Dosage: 20 MG, ONCE A DAY
     Route: 048
     Dates: start: 20141014, end: 20151130
  2. PAXIL [Concomitant]
     Active Substance: PAROXETINE HYDROCHLORIDE
     Indication: DEPRESSION
     Dosage: 1.25 MG, DAILY AFTER THE BREAKFAST.
     Route: 048
     Dates: start: 20121110
  3. NEXIUM [Concomitant]
     Active Substance: ESOMEPRAZOLE MAGNESIUM
     Indication: CHEST PAIN
     Dosage: 10 MG, DAILY AFTER BREAKFAST
     Route: 048
     Dates: start: 20140811
  4. ZETIA [Suspect]
     Active Substance: EZETIMIBE
     Indication: HYPERLIPIDAEMIA
     Dosage: 10 MG, ONCE A DAY
     Route: 048
     Dates: start: 20151005, end: 20151130
  5. GASMOTIN [Concomitant]
     Active Substance: MOSAPRIDE CITRATE
     Indication: ABDOMINAL DISCOMFORT
     Dosage: 5 MG, THREE TIMES A DAY, AFTER EVERY MEAL
     Route: 048
     Dates: start: 20130826
  6. MUCOSTA [Concomitant]
     Active Substance: REBAMIPIDE
     Dosage: 100 MG, DAILY AFTER THE BREAKFAST
     Route: 048
     Dates: start: 20121110
  7. FUROSEMIDE. [Suspect]
     Active Substance: FUROSEMIDE
     Indication: PLEURAL EFFUSION
     Dosage: DAILY DOSAGE UNKNOWN
     Route: 048
     Dates: start: 201412
  8. MAGMITT [Concomitant]
     Active Substance: MAGNESIUM OXIDE
     Indication: CONSTIPATION
     Dosage: 330 MG, DAILY AFTER THE DINNER
     Route: 048
     Dates: start: 20121110

REACTIONS (3)
  - Hepatic function abnormal [Recovered/Resolved]
  - Vomiting [Unknown]
  - Bile duct stone [Unknown]

NARRATIVE: CASE EVENT DATE: 201511
